FAERS Safety Report 9156747 (Version 1)
Quarter: 2013Q1

REPORT INFORMATION
  Report Type: Spontaneous
  Country: ZA (occurrence: None)
  Receive Date: 20130206
  Receipt Date: 20130206
  Transmission Date: 20140127
  Serious: Yes (Hospitalization)
  Sender: FDA-Public Use
  Company Number: AG-2013-0186

PATIENT
  Age: 79 Year
  Sex: Female
  Weight: 57 kg

DRUGS (3)
  1. CHLORAMBUCIL (CHLORAMBUCIL) (UNKNOWN) [Suspect]
     Indication: CHRONIC LYMPHOCYTIC LEUKAEMIA
     Dosage: 44 MILLIGRAM, 1 IN 1 CYCLICAL, UNKNOWN
     Dates: start: 20120821, end: 20121212
  2. WARFARIN (WARFARIN) [Concomitant]
  3. PANTOPRAZOLE (PANTOPRAZOLE) [Concomitant]

REACTIONS (5)
  - Escherichia sepsis [None]
  - Neutropenia [None]
  - Blood pressure decreased [None]
  - Nausea [None]
  - Chills [None]
